FAERS Safety Report 5294370-2 (Version None)
Quarter: 2007Q2

REPORT INFORMATION
  Report Type: 
  Country: None (occurrence: None)
  Receive Date: 20070409
  Receipt Date: 20070409
  Transmission Date: 20071010
  Serious: Yes (Other)
  Sender: FDA-Public Use
  Company Number: None

PATIENT
  Age: 39 Year
  Sex: Female
  Weight: 106.5953 kg

DRUGS (1)
  1. AZITHROMYCIN [Suspect]
     Indication: NASOPHARYNGITIS
     Dates: start: 20070329, end: 20070403

REACTIONS (2)
  - PRURITUS GENERALISED [None]
  - URTICARIA GENERALISED [None]
